FAERS Safety Report 12471573 (Version 2)
Quarter: 2016Q2

REPORT INFORMATION
  Report Type: Spontaneous
  Country: FR (occurrence: FR)
  Receive Date: 20160616
  Receipt Date: 20160619
  Transmission Date: 20160815
  Serious: Yes (Hospitalization)
  Sender: FDA-Public Use
  Company Number: FR-BAXTER-2016BAX030663

PATIENT
  Age: 55 Year
  Sex: Female

DRUGS (2)
  1. ENDOXAN 1000 MG, POUDRE POUR SOLUTION INJECTABLE [Suspect]
     Active Substance: CYCLOPHOSPHAMIDE
     Indication: CENTRAL NERVOUS SYSTEM LUPUS
     Dosage: ONE DOSAGE FORM, 1ST COURSE
     Route: 042
     Dates: start: 20160412, end: 20160412
  2. SOLU-MEDROL [Suspect]
     Active Substance: METHYLPREDNISOLONE SODIUM SUCCINATE
     Indication: CENTRAL NERVOUS SYSTEM LUPUS
     Dosage: 1 DOSAGE FORM, 1ST COURSE
     Route: 042
     Dates: start: 20160412, end: 20160412

REACTIONS (3)
  - Lymphopenia [Recovering/Resolving]
  - Lung disorder [Recovering/Resolving]
  - Neutropenia [Recovering/Resolving]

NARRATIVE: CASE EVENT DATE: 20160422
